FAERS Safety Report 11135425 (Version 1)
Quarter: 2015Q2

REPORT INFORMATION
  Report Type: Spontaneous
  Country: CN (occurrence: None)
  Receive Date: 20150521
  Receipt Date: 20150521
  Transmission Date: 20150821
  Serious: Yes (Other)
  Sender: FDA-Public Use
  Company Number: COR_00297_2015

PATIENT

DRUGS (9)
  1. METHYLOREDNISOLONE [Concomitant]
  2. DEXAMETHASONE. [Concomitant]
     Active Substance: DEXAMETHASONE
  3. CHLORPHENIRAMINE [Concomitant]
     Active Substance: CHLORPHENIRAMINE
  4. PREDNISOLONE. [Concomitant]
     Active Substance: PREDNISOLONE
  5. GEMCITABINE [Suspect]
     Active Substance: GEMCITABINE\GEMCITABINE HYDROCHLORIDE
     Indication: NON-SMALL CELL LUNG CANCER STAGE III
     Dosage: 1000 MG/M2, THREE CYCLES, DAYS 1 AND 8 INTRAVENOUS (NOT OTHERWISE SPECIFIED))
     Route: 042
  6. CARBOPLATIN (CARBOPLATIN) [Suspect]
     Active Substance: CARBOPLATIN
     Indication: NON-SMALL CELL LUNG CANCER STAGE III
     Dosage: THREE CYCLES AUC 5 ON DAY 1, INTRAVENOUS (NOT OTHERWISE SPECIFIED)?
     Route: 042
  7. PACLITAXEL LIPOSOME (PACLITAXEL LIPOSOME) [Suspect]
     Active Substance: PACLITAXEL
     Indication: NON-SMALL CELL LUNG CANCER STAGE III
     Dosage: THREE CYCLES, DAY 1 AND 8 AT 1-3 MG/ML
  8. RANITIDINE [Concomitant]
     Active Substance: RANITIDINE\RANITIDINE HYDROCHLORIDE
  9. ONDANSETRON [Concomitant]
     Active Substance: ONDANSETRON

REACTIONS (1)
  - Acute hepatic failure [None]
